FAERS Safety Report 9122577 (Version 1)
Quarter: 2013Q1

REPORT INFORMATION
  Report Type: Report from Study
  Country: US (occurrence: US)
  Receive Date: 20130227
  Receipt Date: 20130227
  Transmission Date: 20140127
  Serious: No
  Sender: FDA-Public Use
  Company Number: US-VERTEX PHARMACEUTICALS INC.-2013-002494

PATIENT
  Age: 65 Year
  Sex: Male
  Weight: 127 kg

DRUGS (9)
  1. VX-950 (TELAPREVIR) [Suspect]
     Indication: HEPATITIS C
     Dosage: 750 MG, TID
     Route: 048
  2. RIBAVIRIN [Suspect]
     Indication: HEPATITIS C
     Dosage: 200 MG, UNK
  3. PEGASYS [Suspect]
     Indication: HEPATITIS C
  4. GLYBURIDE [Concomitant]
     Dosage: 2.5 MG, UNK
  5. LOSARTAN POTASSIUM [Concomitant]
     Dosage: 50 MG, UNK
  6. OMEPRAZOLE [Concomitant]
     Dosage: 10 MG, UNK
  7. METFORMIN [Concomitant]
     Dosage: 1000 MG, UNK
  8. BAYER CHILDREN^S ASPIRIN [Concomitant]
     Dosage: 81 MG, UNK
  9. NYQUIL CHILDRENS [Concomitant]

REACTIONS (11)
  - Headache [Unknown]
  - Arthralgia [Unknown]
  - Pyrexia [Unknown]
  - Insomnia [Unknown]
  - Abdominal distension [Unknown]
  - Tremor [Unknown]
  - Feeling cold [Unknown]
  - Chills [Unknown]
  - Dark circles under eyes [Unknown]
  - Haemorrhoids [Unknown]
  - Anal pruritus [Unknown]
